FAERS Safety Report 7056980-1 (Version None)
Quarter: 2010Q4

REPORT INFORMATION
  Report Type: 
  Country: None (occurrence: None)
  Receive Date: 20101022
  Receipt Date: 20101014
  Transmission Date: 20110411
  Serious: Yes (Hospitalization, Other)
  Sender: FDA-Public Use
  Company Number: US-RB-016740-10

PATIENT
  Age: 45 Year
  Sex: Male

DRUGS (1)
  1. SUBOXONE TABLET [Suspect]
     Indication: PRODUCT USED FOR UNKNOWN INDICATION
     Dosage: DOSGAE INFORMATION UNKNOWN
     Route: 065

REACTIONS (6)
  - ANGER [None]
  - ARTHRITIS INFECTIVE [None]
  - CONVULSION [None]
  - JOINT DISLOCATION [None]
  - TOOTH LOSS [None]
  - VASCULAR OCCLUSION [None]
